FAERS Safety Report 17158668 (Version 1)
Quarter: 2019Q4

REPORT INFORMATION
  Report Type: Spontaneous
  Country: FR (occurrence: FR)
  Receive Date: 20191216
  Receipt Date: 20191216
  Transmission Date: 20200122
  Serious: Yes (Hospitalization)
  Sender: FDA-Public Use
  Company Number: FR-ABBVIE-19K-056-3191082-00

PATIENT
  Age: 74 Year
  Sex: Male
  Weight: 89 kg

DRUGS (2)
  1. HARVONI [Suspect]
     Active Substance: LEDIPASVIR\SOFOSBUVIR
     Indication: HEPATITIS C
     Route: 048
     Dates: start: 20160419, end: 20160429
  2. MAVIRET [Suspect]
     Active Substance: GLECAPREVIR\PIBRENTASVIR
     Indication: HEPATITIS C
     Route: 048
     Dates: start: 20180605

REACTIONS (1)
  - Hepatocellular carcinoma [Unknown]

NARRATIVE: CASE EVENT DATE: 20190429
